FAERS Safety Report 6906423-0 (Version None)
Quarter: 2010Q3

REPORT INFORMATION
  Report Type: 
  Country: None (occurrence: None)
  Receive Date: 20100804
  Receipt Date: 20100727
  Transmission Date: 20110219
  Serious: Yes (Hospitalization)
  Sender: FDA-Public Use
  Company Number: B0659776A

PATIENT
  Sex: Male

DRUGS (1)
  1. AMOXICILLIN AND CLAVULANATE POTASSIUM [Suspect]
     Indication: PHARYNGITIS
     Dosage: 2G PER DAY
     Route: 048
     Dates: start: 20100412, end: 20100413

REACTIONS (3)
  - PRURITUS GENERALISED [None]
  - RASH ERYTHEMATOUS [None]
  - URTICARIA [None]
